FAERS Safety Report 16749874 (Version 1)
Quarter: 2019Q3

REPORT INFORMATION
  Report Type: Spontaneous
  Country: TR (occurrence: TR)
  Receive Date: 20190828
  Receipt Date: 20190828
  Transmission Date: 20191005
  Serious: Yes (Hospitalization)
  Sender: FDA-Public Use
  Company Number: TR-SA-2019SA235764

PATIENT
  Age: 28 Year
  Sex: Female

DRUGS (2)
  1. MEDROXYPROGESTERONE [Concomitant]
     Active Substance: MEDROXYPROGESTERONE
     Dosage: 5 MG, QD (FOR 3-5 DAYS FOR 2-3 TIMES PER YEAR)
     Route: 048
  2. CLOMIFENE CITRATE [Suspect]
     Active Substance: CLOMIPHENE
     Dosage: 50 MG, QD (3-7 DAYS OF HER MENSTRUEL PERIOD)

REACTIONS (5)
  - Skin lesion [Recovering/Resolving]
  - Papule [Recovering/Resolving]
  - Nodule [Recovering/Resolving]
  - Skin plaque [Recovering/Resolving]
  - Angiolymphoid hyperplasia with eosinophilia [Recovering/Resolving]
